FAERS Safety Report 16666809 (Version 1)
Quarter: 2019Q3

REPORT INFORMATION
  Report Type: Spontaneous
  Country: GB (occurrence: GB)
  Receive Date: 20190805
  Receipt Date: 20190805
  Transmission Date: 20191004
  Serious: Yes (Other)
  Sender: FDA-Public Use
  Company Number: GB-TEVA-2019-GB-1087604

PATIENT
  Age: 76 Year
  Sex: Male

DRUGS (1)
  1. 401 (GALANTAMINE HYDROBROMIDE) [Suspect]
     Active Substance: GALANTAMINE HYDROBROMIDE
     Indication: DEMENTIA
     Dosage: 12 MILLIGRAM, 2X/DAY:BID
     Route: 048

REACTIONS (1)
  - Dysphagia [Unknown]
